FAERS Safety Report 5160941-7 (Version None)
Quarter: 2006Q4

REPORT INFORMATION
  Report Type: 
  Country: None (occurrence: None)
  Receive Date: 20061130
  Receipt Date: 20051216
  Transmission Date: 20070319
  Serious: No
  Sender: FDA-Public Use
  Company Number: US-BRISTOL-MYERS SQUIBB COMPANY-13219365

PATIENT
  Sex: Female

DRUGS (3)
  1. AVALIDE [Suspect]
     Indication: HYPERTENSION
     Dates: start: 20051214
  2. ESTRACE [Concomitant]
  3. IMIPRAMINE [Concomitant]

REACTIONS (1)
  - RASH PRURITIC [None]
